FAERS Safety Report 9612343 (Version 2)
Quarter: 2013Q4

REPORT INFORMATION
  Report Type: Spontaneous
  Country: US (occurrence: US)
  Receive Date: 20131010
  Receipt Date: 20131010
  Transmission Date: 20140711
  Serious: Yes (Other)
  Sender: FDA-Public Use
  Company Number: US-ASTELLAS-2013US008038

PATIENT
  Age: 70 Year
  Sex: Female

DRUGS (6)
  1. MYRBETRIQ [Suspect]
     Indication: URINARY INCONTINENCE
     Dosage: 50 MG, UID/QD
     Route: 065
     Dates: start: 20130723
  2. MYRBETRIQ [Suspect]
     Indication: MICTURITION URGENCY
     Dosage: 25 MG, UID/QD
     Route: 048
  3. MYRBETRIQ [Suspect]
     Dosage: 50 MG, UID/QD
     Route: 048
     Dates: end: 20130814
  4. IMITREX                            /01044801/ [Concomitant]
     Indication: PRODUCT USED FOR UNKNOWN INDICATION
     Dosage: UNK
     Route: 065
  5. FLEXERIL                           /00428402/ [Concomitant]
     Indication: MUSCLE RELAXANT THERAPY
     Dosage: UNK
     Route: 065
  6. MELOXICAM [Concomitant]
     Indication: PRODUCT USED FOR UNKNOWN INDICATION
     Dosage: UNK
     Route: 065

REACTIONS (2)
  - Intentional drug misuse [Recovered/Resolved]
  - Urinary retention [Recovered/Resolved]
